FAERS Safety Report 22100470 (Version 1)
Quarter: 2023Q1

REPORT INFORMATION
  Report Type: Spontaneous
  Country: IT (occurrence: IT)
  Receive Date: 20230316
  Receipt Date: 20230316
  Transmission Date: 20230417
  Serious: Yes (Other)
  Sender: FDA-Public Use
  Company Number: IT-BAXTER-2023BAX015081

PATIENT
  Sex: Male

DRUGS (7)
  1. DOXORUBICIN [Suspect]
     Active Substance: DOXORUBICIN
     Indication: Neuroblastoma
     Dosage: FOUR COURSES OF TVD
     Route: 065
  2. IFOSFAMIDE [Suspect]
     Active Substance: IFOSFAMIDE
     Indication: Neuroblastoma recurrent
     Dosage: TWO COURSES OF ICE CHEMOTHERAPY
     Route: 065
  3. IFOSFAMIDE [Suspect]
     Active Substance: IFOSFAMIDE
     Dosage: THIRD COURSE OF ICE
     Route: 065
     Dates: start: 202009
  4. CARBOPLATIN [Suspect]
     Active Substance: CARBOPLATIN
     Indication: Neuroblastoma recurrent
     Dosage: TWO COURSES OF ICE CHEMOTHERAPY
     Route: 065
  5. CARBOPLATIN [Suspect]
     Active Substance: CARBOPLATIN
     Dosage: THIRD COURSE OF ICE
     Route: 065
     Dates: start: 202009
  6. ETOPOSIDE [Suspect]
     Active Substance: ETOPOSIDE
     Indication: Neuroblastoma recurrent
     Dosage: TWO COURSES OF ICE CHEMOTHERAPY
     Route: 065
  7. ETOPOSIDE [Suspect]
     Active Substance: ETOPOSIDE
     Dosage: THIRD COURSE OF ICE
     Route: 065
     Dates: start: 202009

REACTIONS (2)
  - Nephropathy toxic [Unknown]
  - Haematotoxicity [Unknown]

NARRATIVE: CASE EVENT DATE: 20200901
